FAERS Safety Report 6397489-8 (Version None)
Quarter: 2009Q4

REPORT INFORMATION
  Report Type: 
  Country: None (occurrence: None)
  Receive Date: 20091012
  Receipt Date: 20090930
  Transmission Date: 20100525
  Serious: Yes (Death)
  Sender: FDA-Public Use
  Company Number: AU-PFIZER INC-2009208971

PATIENT
  Age: 56 Year

DRUGS (13)
  1. MARAVIROC [Suspect]
     Dosage: 150 MG, 2X/DAY
     Route: 048
     Dates: start: 20050427, end: 20080401
  2. MARAVIROC [Suspect]
     Dosage: 300 MG, 2X/DAY
     Route: 048
     Dates: start: 20080402, end: 20080714
  3. LIPITOR [Concomitant]
     Dosage: 80 MG, 1X/DAY
     Route: 048
     Dates: start: 20060705
  4. ISENTRESS [Concomitant]
     Dosage: 400 MG, 2X/DAY
     Dates: start: 20080714
  5. PREZISTA [Concomitant]
     Dosage: 300 MG, 2X/DAY
     Route: 048
     Dates: start: 20080714
  6. NORVIR [Concomitant]
     Dosage: 100 MG, UNK
     Route: 048
     Dates: start: 20080714
  7. AUGMENTIN [Concomitant]
     Dosage: 1 MG, 2X/DAY
     Route: 048
     Dates: start: 20090414
  8. ACETAMINOPHEN W/ CODEINE [Concomitant]
     Dosage: 1 MG, AS NEEDED
     Route: 048
     Dates: start: 20090414
  9. FAMCICLOVIR [Concomitant]
     Dosage: 500 MG, 1X/DAY
     Route: 048
     Dates: start: 20050919
  10. EPILIM [Concomitant]
     Dosage: UNK
     Route: 048
     Dates: start: 20040906
  11. NASONEX [Concomitant]
     Dosage: UNK
     Dates: start: 20061014
  12. TEMAZEPAM [Concomitant]
     Dosage: UNK
     Route: 048
     Dates: start: 20061014
  13. VIAGRA [Concomitant]
     Dosage: UNK
     Route: 048
     Dates: start: 20080123

REACTIONS (1)
  - DEATH [None]
